FAERS Safety Report 22284978 (Version 4)
Quarter: 2023Q2

REPORT INFORMATION
  Report Type: Spontaneous
  Country: US (occurrence: US)
  Receive Date: 20230504
  Receipt Date: 20230620
  Transmission Date: 20230722
  Serious: No
  Sender: FDA-Public Use
  Company Number: US-PFIZER INC-202300175644

PATIENT
  Age: 34 Year
  Sex: Female
  Weight: 70.295 kg

DRUGS (10)
  1. PAXLOVID [Suspect]
     Active Substance: NIRMATRELVIR\RITONAVIR
     Indication: COVID-19 treatment
     Dosage: UNK, 2X/DAY
     Route: 048
     Dates: start: 20230418, end: 20230423
  2. HUMIRA [Concomitant]
     Active Substance: ADALIMUMAB
     Indication: Proctitis ulcerative
     Dosage: UNK
     Route: 058
     Dates: start: 20210126, end: 20230410
  3. HUMIRA [Concomitant]
     Active Substance: ADALIMUMAB
     Indication: Axial spondyloarthritis
  4. METHOTREXATE [Concomitant]
     Active Substance: METHOTREXATE
     Indication: Proctitis ulcerative
     Dosage: UNK
     Route: 048
     Dates: start: 20200606
  5. METHOTREXATE [Concomitant]
     Active Substance: METHOTREXATE
     Indication: Axial spondyloarthritis
  6. LEUCOVORIN [Concomitant]
     Active Substance: LEUCOVORIN
     Indication: Proctitis ulcerative
     Dosage: UNK
     Dates: start: 20200906
  7. LEUCOVORIN [Concomitant]
     Active Substance: LEUCOVORIN
     Indication: Axial spondyloarthritis
     Dosage: 1 DF, DAILY
     Dates: start: 2021
  8. ACETAMINOPHEN [Concomitant]
     Active Substance: ACETAMINOPHEN
     Indication: Pyrexia
     Dosage: UNK
     Dates: start: 20230417, end: 20230422
  9. ACETAMINOPHEN [Concomitant]
     Active Substance: ACETAMINOPHEN
     Indication: Pain
  10. ACETAMINOPHEN [Concomitant]
     Active Substance: ACETAMINOPHEN
     Indication: Headache

REACTIONS (2)
  - COVID-19 [Recovered/Resolved]
  - Disease recurrence [Recovered/Resolved]

NARRATIVE: CASE EVENT DATE: 20230428
